FAERS Safety Report 20547451 (Version 1)
Quarter: 2022Q1

REPORT INFORMATION
  Report Type: Spontaneous
  Country: BR (occurrence: BR)
  Receive Date: 20220303
  Receipt Date: 20220303
  Transmission Date: 20220424
  Serious: Yes (Hospitalization)
  Sender: FDA-Public Use
  Company Number: DEX 2022-0035(0)

PATIENT
  Age: 18 Month
  Sex: Male

DRUGS (10)
  1. DEXMEDETOMIDINE HYDROCHLORIDE [Suspect]
     Active Substance: DEXMEDETOMIDINE HYDROCHLORIDE
     Indication: Sedative therapy
     Dosage: MAINTAINED (3.19 MILLIGRAM, 1D)
     Route: 065
  2. KETAMINE [Suspect]
     Active Substance: KETAMINE
     Indication: Sedative therapy
     Dosage: INITIAL ATTACK DOSE (650 MILLIGRAM, 1D)
     Route: 065
  3. KETAMINE [Suspect]
     Active Substance: KETAMINE
     Indication: Analgesic therapy
     Dosage: MAINTENANCE DOSE (639 MILLIGRAM, 1 D)
     Route: 065
  4. KETAMINE [Suspect]
     Active Substance: KETAMINE
     Dosage: (240 MILLIGRAM, 1 D)
     Route: 065
  5. KETAMINE [Suspect]
     Active Substance: KETAMINE
     Dosage: (15 MICROGRAM, 1 D)
     Route: 065
  6. MIDAZOLAM [Suspect]
     Active Substance: MIDAZOLAM
     Indication: Sedative therapy
     Dosage: INITIAL ATTACK DOSE (107 MILLIGRAM, 1 D)
     Route: 065
  7. MIDAZOLAM [Suspect]
     Active Substance: MIDAZOLAM
     Indication: Analgesic therapy
     Dosage: THROUGH CONTINUOUS INFUSION (107 MILLIGRAM, 1 D)
     Route: 065
  8. MIDAZOLAM [Suspect]
     Active Substance: MIDAZOLAM
     Dosage: (399 MILLIGRAM, 1 D)
     Route: 065
  9. FENTANYL [Suspect]
     Active Substance: FENTANYL
     Indication: Sedative therapy
     Dosage: (532 MILLIGRAM, 1 D)
     Route: 065
  10. FENTANYL [Suspect]
     Active Substance: FENTANYL
     Indication: Analgesic therapy

REACTIONS (15)
  - Off label use [Unknown]
  - Overdose [Unknown]
  - Agitation [Recovered/Resolved]
  - Circadian rhythm sleep disorder [Recovered/Resolved]
  - Aggression [Recovered/Resolved]
  - Irritability [Recovered/Resolved]
  - Crying [Recovered/Resolved]
  - Cognitive disorder [Unknown]
  - Stereotypy [Recovered/Resolved]
  - Gait disturbance [Recovered/Resolved]
  - Motor dysfunction [Recovered/Resolved]
  - Muscular weakness [Recovered/Resolved]
  - Tremor [Recovered/Resolved]
  - Speech disorder developmental [Not Recovered/Not Resolved]
  - Muscle spasms [Recovered/Resolved]
